FAERS Safety Report 10673452 (Version 1)
Quarter: 2014Q4

REPORT INFORMATION
  Report Type: Spontaneous
  Country: ES (occurrence: ES)
  Receive Date: 20141224
  Receipt Date: 20141224
  Transmission Date: 20150529
  Serious: Yes (Other)
  Sender: FDA-Public Use
  Company Number: ES-AUROBINDO-AUR-APL-2014-13233

PATIENT
  Age: 80 Year
  Sex: Male

DRUGS (1)
  1. MIRTAZAPINE AUROBINDO 30MG FILM-COATED TABLETS [Suspect]
     Active Substance: MIRTAZAPINE
     Indication: PRODUCT USED FOR UNKNOWN INDICATION
     Route: 065

REACTIONS (4)
  - Burning sensation [Unknown]
  - Condition aggravated [Unknown]
  - Restlessness [Unknown]
  - Pruritus [Unknown]
